FAERS Safety Report 5595431-0 (Version None)
Quarter: 2008Q1

REPORT INFORMATION
  Report Type: 
  Country: None (occurrence: None)
  Receive Date: 20080118
  Receipt Date: 20080108
  Transmission Date: 20080703
  Serious: Yes (Hospitalization)
  Sender: FDA-Public Use
  Company Number: US-JNJFOC-20080102765

PATIENT
  Sex: Female
  Weight: 66.68 kg

DRUGS (1)
  1. DURAGESIC-100 [Suspect]
     Indication: COMPLEX REGIONAL PAIN SYNDROME
     Dosage: 100 MCG AND 25 MCG PATCH
     Route: 062

REACTIONS (7)
  - COMPLEX REGIONAL PAIN SYNDROME [None]
  - INCORRECT DRUG ADMINISTRATION DURATION [None]
  - INTRACRANIAL HYPOTENSION [None]
  - PAIN IN EXTREMITY [None]
  - SPINAL FUSION SURGERY [None]
  - THORACIC OUTLET SURGERY [None]
  - WEIGHT DECREASED [None]
